FAERS Safety Report 18240559 (Version 3)
Quarter: 2020Q4

REPORT INFORMATION
  Report Type: Spontaneous
  Country: US (occurrence: US)
  Receive Date: 20200908
  Receipt Date: 20201021
  Transmission Date: 20210113
  Serious: No
  Sender: FDA-Public Use
  Company Number: US-ASTRAZENECA-2020SF07780

PATIENT
  Age: 3736 Week
  Sex: Female
  Weight: 70.8 kg

DRUGS (2)
  1. PULMICORT FLEXHALER [Suspect]
     Active Substance: BUDESONIDE
     Indication: DYSPNOEA
     Route: 055
     Dates: start: 20200819
  2. PULMICORT FLEXHALER [Suspect]
     Active Substance: BUDESONIDE
     Indication: DYSPNOEA
     Dosage: 180 MCG, 1 PUFF, ONCE OR TWICE A DAY
     Route: 055

REACTIONS (5)
  - Choking sensation [Unknown]
  - Device defective [Unknown]
  - Product dose omission issue [Unknown]
  - Intentional device misuse [Unknown]
  - Cough [Unknown]

NARRATIVE: CASE EVENT DATE: 20200819
